FAERS Safety Report 10868500 (Version 1)
Quarter: 2015Q1

REPORT INFORMATION
  Report Type: Spontaneous
  Country: US (occurrence: US)
  Receive Date: 20150225
  Receipt Date: 20150225
  Transmission Date: 20150721
  Serious: Yes (Other)
  Sender: FDA-Public Use
  Company Number: US-B.I. PHARMACEUTICALS,INC./RIDGEFIELD-2015-BI-09083BP

PATIENT
  Age: 75 Year
  Sex: Female
  Weight: 45 kg

DRUGS (8)
  1. ZANTAC [Suspect]
     Active Substance: RANITIDINE HYDROCHLORIDE
     Indication: GASTROOESOPHAGEAL REFLUX DISEASE
     Dosage: 75 MG
     Route: 048
     Dates: start: 201308, end: 201408
  2. ZANTAC [Suspect]
     Active Substance: RANITIDINE HYDROCHLORIDE
     Dosage: DOSE PER APPLICATION:75 MG AND 150 MG ; DAILY DOSE:225 MG
     Route: 048
     Dates: start: 201412
  3. VSL#3 (PROBIOTIC) [Concomitant]
     Indication: GASTROINTESTINAL DISORDER
     Route: 048
     Dates: start: 2012
  4. CALCIUM [Concomitant]
     Active Substance: CALCIUM
     Indication: OSTEOPOROSIS
     Route: 065
  5. ZANTAC [Suspect]
     Active Substance: RANITIDINE HYDROCHLORIDE
     Dosage: 300 MG
     Route: 048
     Dates: start: 201408, end: 201412
  6. VITAMIN D [Concomitant]
     Active Substance: CHOLECALCIFEROL
     Indication: OSTEOPOROSIS
     Route: 048
  7. FORTEO [Concomitant]
     Active Substance: TERIPARATIDE
     Indication: OSTEOPOROSIS
     Dosage: FORMULATION: SUBCUTANEOUS
     Route: 058
     Dates: start: 2013
  8. PREDNISONE. [Concomitant]
     Active Substance: PREDNISONE
     Indication: AUTOIMMUNE DISORDER
     Dosage: 5 MG
     Route: 048
     Dates: start: 2011

REACTIONS (6)
  - Fall [Recovered/Resolved]
  - Laceration [Not Recovered/Not Resolved]
  - Incorrect drug administration duration [Unknown]
  - Wound infection [Not Recovered/Not Resolved]
  - Off label use [Not Recovered/Not Resolved]
  - Squamous cell carcinoma [Not Recovered/Not Resolved]

NARRATIVE: CASE EVENT DATE: 201308
